FAERS Safety Report 6718458-1 (Version None)
Quarter: 2010Q2

REPORT INFORMATION
  Report Type: 
  Country: None (occurrence: None)
  Receive Date: 20100510
  Receipt Date: 20100503
  Transmission Date: 20101027
  Serious: Yes (Hospitalization, Other)
  Sender: FDA-Public Use
  Company Number: FR-BRISTOL-MYERS SQUIBB COMPANY-14985790

PATIENT
  Age: 28 Year
  Sex: Female

DRUGS (11)
  1. ABATACEPT [Suspect]
     Indication: SYSTEMIC LUPUS ERYTHEMATOSUS
     Dosage: INTERRUPTED ON 15JAN2010
     Route: 042
     Dates: start: 20081121
  2. MYCOPHENOLATE MOFETIL [Suspect]
     Indication: SYSTEMIC LUPUS ERYTHEMATOSUS
     Dates: start: 20081121
  3. PREDNISONE TAB [Suspect]
     Indication: SYSTEMIC LUPUS ERYTHEMATOSUS
     Dosage: 5 TO 10 MG DAILY
     Dates: start: 20000715
  4. CORTANCYL [Concomitant]
     Dates: start: 20000715
  5. PLAQUENIL [Concomitant]
     Dates: start: 20000725
  6. OROCAL [Concomitant]
  7. VITAMIN D3 [Concomitant]
     Dates: start: 20000701
  8. RAMIPRIL [Concomitant]
     Dates: start: 20080701
  9. LUTERAN [Concomitant]
     Dates: start: 20080701
  10. FOLIC ACID [Concomitant]
  11. DIFFU-K [Concomitant]
     Dates: start: 20080701

REACTIONS (1)
  - RETINOPATHY [None]
